FAERS Safety Report 6435588-2 (Version None)
Quarter: 2009Q4

REPORT INFORMATION
  Report Type: 
  Country: None (occurrence: None)
  Receive Date: 20091111
  Receipt Date: 20091102
  Transmission Date: 20100525
  Serious: Yes (Death)
  Sender: FDA-Public Use
  Company Number: US-JNJFOC-20091100672

PATIENT
  Age: 16 Year
  Sex: Male

DRUGS (4)
  1. TYLENOL [Suspect]
  2. TYLENOL [Suspect]
     Indication: DRUG ABUSE
  3. XANAX [Suspect]
     Indication: DRUG ABUSE
  4. HEROIN [Suspect]
     Indication: DRUG ABUSE

REACTIONS (2)
  - MULTIPLE DRUG OVERDOSE [None]
  - SUBSTANCE ABUSE [None]
